FAERS Safety Report 7901913-6 (Version None)
Quarter: 2011Q4

REPORT INFORMATION
  Report Type: 
  Country: None (occurrence: None)
  Receive Date: 20111107
  Receipt Date: 20111107
  Transmission Date: 20120403
  Serious: Yes (Hospitalization)
  Sender: FDA-Public Use
  Company Number: None

PATIENT
  Sex: Male
  Weight: 80.5 kg

DRUGS (4)
  1. DEXAMETHASONE [Suspect]
     Dosage: 52.5 MG
  2. DEXAMETHASONE SODIUM PHOSPHATE [Suspect]
     Dosage: 2 MG
  3. METHOTREXATE [Suspect]
     Dosage: 15 MG
  4. MERCAPTOPURINE [Suspect]
     Dosage: 450 MG

REACTIONS (8)
  - LIVER FUNCTION TEST ABNORMAL [None]
  - PORTAL VEIN THROMBOSIS [None]
  - DIALYSIS [None]
  - MULTI-ORGAN FAILURE [None]
  - PYREXIA [None]
  - RENAL IMPAIRMENT [None]
  - PLEURAL EFFUSION [None]
  - ABDOMINAL PAIN [None]
